FAERS Safety Report 5054965-8 (Version None)
Quarter: 2006Q3

REPORT INFORMATION
  Report Type: 
  Country: None (occurrence: None)
  Receive Date: 20060719
  Receipt Date: 20060712
  Transmission Date: 20061208
  Serious: Yes (Hospitalization, Other)
  Sender: FDA-Public Use
  Company Number: US-GLAXOSMITHKLINE-A0612016A

PATIENT
  Age: 57 Year
  Sex: Female

DRUGS (15)
  1. AVANDAMET [Suspect]
     Dosage: 1TAB TWICE PER DAY
     Route: 048
     Dates: start: 20040501, end: 20051101
  2. INSULIN [Concomitant]
  3. FUROSEMIDE [Concomitant]
  4. ASPIRIN [Concomitant]
  5. KLOR-CON [Concomitant]
  6. HYZAAR [Concomitant]
  7. DILTIAZEM HCL [Concomitant]
  8. COREG [Concomitant]
  9. NEXIUM [Concomitant]
  10. LIPITOR [Concomitant]
  11. ISOSORBIDE MONONITRATE [Concomitant]
  12. PLAVIX [Concomitant]
  13. GEMFIBROZIL [Concomitant]
  14. VITAMINS [Concomitant]
  15. GLIPIZIDE [Concomitant]

REACTIONS (5)
  - CARDIAC FAILURE [None]
  - PAIN [None]
  - SLEEP APNOEA SYNDROME [None]
  - SWELLING [None]
  - WEIGHT INCREASED [None]
